FAERS Safety Report 9173199 (Version 1)
Quarter: 2013Q1

REPORT INFORMATION
  Report Type: Spontaneous
  Country: US (occurrence: None)
  Receive Date: 20130319
  Receipt Date: 20130319
  Transmission Date: 20140127
  Serious: Yes (Hospitalization)
  Sender: FDA-Public Use
  Company Number: None

PATIENT
  Age: 77 Year
  Sex: Female
  Weight: 98.43 kg

DRUGS (1)
  1. GAMMAGARD [Suspect]
     Route: 041
     Dates: start: 20130304, end: 20130304

REACTIONS (5)
  - Chills [None]
  - Dyspnoea [None]
  - Nausea [None]
  - Vomiting [None]
  - Infusion related reaction [None]
